FAERS Safety Report 7795503-6 (Version None)
Quarter: 2011Q3

REPORT INFORMATION
  Report Type: 
  Country: None (occurrence: None)
  Receive Date: 20110930
  Receipt Date: 20110921
  Transmission Date: 20111222
  Serious: Yes (Other)
  Sender: FDA-Public Use
  Company Number: 1000024147

PATIENT
  Age: 61 Year
  Sex: Male
  Weight: 105.2 kg

DRUGS (8)
  1. PANTOPRAZOLE (PANTOPRAZOLE) (PANTOPRAZOLE) [Concomitant]
  2. TESTOSTERONE (TESTOSTERONE) (TESTOSTERONE) [Concomitant]
  3. ASPIRIN [Concomitant]
  4. EZETIMIBE [Concomitant]
  5. SIMVASTATIN [Concomitant]
  6. ATENOLOL [Concomitant]
  7. DILTIAZEM [Suspect]
     Indication: VENTRICULAR EXTRASYSTOLES
     Dosage: 240 MG (240 MG, 1 IN 1 D), ORAL
     Route: 048
  8. CITALOPRAM HYDROBROMIDE [Suspect]
     Dosage: 10 MG (10 MG, 1 IN 1 D), ORAL
     Route: 048

REACTIONS (7)
  - BLOOD GLUCOSE INCREASED [None]
  - DYSKINESIA [None]
  - MYOCLONUS [None]
  - SERUM FERRITIN DECREASED [None]
  - SLEEP APNOEA SYNDROME [None]
  - EXAGGERATED STARTLE RESPONSE [None]
  - IRON BINDING CAPACITY TOTAL INCREASED [None]
